FAERS Safety Report 7307928-3 (Version None)
Quarter: 2011Q1

REPORT INFORMATION
  Report Type: 
  Country: None (occurrence: None)
  Receive Date: 20110223
  Receipt Date: 20110218
  Transmission Date: 20110831
  Serious: Yes (Death)
  Sender: FDA-Public Use
  Company Number: ES-SANOFI-AVENTIS-2011SA009036

PATIENT
  Age: 69 Year
  Sex: Female

DRUGS (2)
  1. OXALIPLATIN [Suspect]
     Indication: COLON CANCER STAGE III
     Route: 041
     Dates: start: 20110120
  2. XELODA [Suspect]
     Indication: COLON CANCER STAGE III
     Route: 048
     Dates: start: 20110120, end: 20110127

REACTIONS (4)
  - INTESTINAL PERFORATION [None]
  - SEPTIC SHOCK [None]
  - PERITONEAL INFECTION [None]
  - TOXICITY TO VARIOUS AGENTS [None]
